FAERS Safety Report 8850487 (Version 1)
Quarter: 2012Q4

REPORT INFORMATION
  Report Type: Report from Study
  Country: US (occurrence: US)
  Receive Date: 20121019
  Receipt Date: 20121019
  Transmission Date: 20130627
  Serious: Yes (Other)
  Sender: FDA-Public Use
  Company Number: US-ROCHE-1139214

PATIENT
  Age: 11 Year
  Sex: Male

DRUGS (3)
  1. BEVACIZUMAB [Suspect]
     Indication: NEUROBLASTOMA
     Dosage: FIRST CYCLE
     Route: 065
     Dates: start: 20120824, end: 20120907
  2. TEMOZOLOMIDE [Suspect]
     Indication: NEUROBLASTOMA
     Dosage: FIRST CYCLE
     Route: 065
     Dates: start: 20120824, end: 20120907
  3. IRINOTECAN [Suspect]
     Indication: NEUROBLASTOMA
     Dosage: FIRST CYCLE
     Route: 065
     Dates: start: 20120824, end: 20120907

REACTIONS (1)
  - Alanine aminotransferase increased [Unknown]
